FAERS Safety Report 8564701-6 (Version None)
Quarter: 2012Q3

REPORT INFORMATION
  Report Type: 
  Country: None (occurrence: None)
  Receive Date: 20120803
  Receipt Date: 20120727
  Transmission Date: 20120928
  Serious: Yes (Hospitalization)
  Sender: FDA-Public Use
  Company Number: JP-009507513-1207JPN012606

PATIENT

DRUGS (13)
  1. FERROUS CITRATE [Concomitant]
     Indication: IRON DEFICIENCY ANAEMIA
     Route: 048
  2. DIOVAN [Concomitant]
     Indication: HYPERTENSION
     Route: 048
  3. EPADEL S [Concomitant]
     Indication: DYSLIPIDAEMIA
     Route: 048
     Dates: start: 20120510
  4. TELAVIC [Suspect]
     Route: 048
     Dates: start: 20120524, end: 20120527
  5. LOXONIN [Concomitant]
     Indication: PROPHYLAXIS
     Dosage: AS NEEDED
     Route: 048
  6. REBETOL [Suspect]
     Indication: HEPATITIS C
     Route: 048
     Dates: start: 20120510, end: 20120523
  7. AMOBAN [Concomitant]
     Indication: PROPHYLAXIS
     Dosage: AS NEEDED
     Route: 048
  8. PEG-INTRON [Suspect]
     Dosage: 0.9MCG/KG/WEEK
     Route: 058
     Dates: start: 20120531
  9. REBETOL [Suspect]
     Route: 048
     Dates: start: 20120524
  10. TELAVIC [Suspect]
     Route: 048
     Dates: start: 20120528
  11. FEBURIC [Concomitant]
     Indication: PROPHYLAXIS
     Route: 048
     Dates: start: 20120510
  12. PEG-INTRON [Suspect]
     Indication: HEPATITIS C
     Dosage: 1.5MCG/KG/WEEK
     Route: 058
     Dates: start: 20120510, end: 20120530
  13. TELAVIC [Suspect]
     Indication: HEPATITIS C
     Route: 048
     Dates: start: 20120510, end: 20120523

REACTIONS (1)
  - PYELONEPHRITIS [None]
